FAERS Safety Report 15453573 (Version 7)
Quarter: 2019Q3

REPORT INFORMATION
  Report Type: Report from Study
  Country: US (occurrence: US)
  Receive Date: 20181001
  Receipt Date: 20190925
  Transmission Date: 20191004
  Serious: Yes (Hospitalization)
  Sender: FDA-Public Use
  Company Number: US-ACTELION-A-NJ2018-179422

PATIENT
  Age: 42 Year
  Sex: Female
  Weight: 68.03 kg

DRUGS (4)
  1. REVATIO [Concomitant]
     Active Substance: SILDENAFIL CITRATE
  2. OXYGEN. [Concomitant]
     Active Substance: OXYGEN
  3. UPTRAVI [Concomitant]
     Active Substance: SELEXIPAG
  4. OPSUMIT [Suspect]
     Active Substance: MACITENTAN
     Indication: PULMONARY ARTERIAL HYPERTENSION
     Dosage: 10 MG, QD
     Route: 048

REACTIONS (21)
  - Head injury [Unknown]
  - Loss of consciousness [Unknown]
  - Fall [Unknown]
  - Wolff-Parkinson-White syndrome [Unknown]
  - Pneumonia [Unknown]
  - Tachycardia [Unknown]
  - Heart injury [Unknown]
  - Fatigue [Unknown]
  - Nausea [Unknown]
  - Oxygen saturation decreased [Unknown]
  - Breathing-related sleep disorder [Unknown]
  - Dyspnoea exertional [Unknown]
  - Diagnostic procedure [Unknown]
  - Headache [Unknown]
  - Bronchitis [Unknown]
  - Heart rate increased [Unknown]
  - Chest pain [Unknown]
  - Catheterisation cardiac [Unknown]
  - Syncope [Unknown]
  - Dizziness [Unknown]
  - Cough [Unknown]

NARRATIVE: CASE EVENT DATE: 20180903
